FAERS Safety Report 18006391 (Version 3)
Quarter: 2020Q4

REPORT INFORMATION
  Report Type: Report from Study
  Country: DE (occurrence: DE)
  Receive Date: 20200710
  Receipt Date: 20201021
  Transmission Date: 20210113
  Serious: Yes (Other)
  Sender: FDA-Public Use
  Company Number: DE-GILEAD-2020-0480724

PATIENT
  Age: 43 Year
  Sex: Male
  Weight: 91 kg

DRUGS (4)
  1. IBUFLAM AKUT [Concomitant]
  2. EMTRICITABINE/RILPIVIRINE/TENOFOVIR DF [Suspect]
     Active Substance: EMTRICITABINE\RILPIVIRINE\TENOFOVIR DISOPROXIL FUMARATE
     Indication: HIV INFECTION
     Dosage: UNK
     Route: 065
     Dates: start: 20200628
  3. NOVALGIN (METAMIZOLE SODIUM) [Suspect]
     Active Substance: METAMIZOLE SODIUM
     Indication: PRODUCT USED FOR UNKNOWN INDICATION
     Dosage: UNK
     Route: 065
  4. ZEPATIER [Concomitant]
     Active Substance: ELBASVIR\GRAZOPREVIR
     Indication: CHRONIC HEPATITIS C
     Dosage: 150 MG, QD
     Route: 048
     Dates: start: 20200508, end: 20200730

REACTIONS (2)
  - Umbilical hernia [Not Recovered/Not Resolved]
  - Abdominal discomfort [Not Recovered/Not Resolved]

NARRATIVE: CASE EVENT DATE: 20200628
